FAERS Safety Report 7474736-2 (Version None)
Quarter: 2011Q2

REPORT INFORMATION
  Report Type: 
  Country: None (occurrence: None)
  Receive Date: 20110505
  Receipt Date: 20110420
  Transmission Date: 20111010
  Serious: Yes (Death)
  Sender: FDA-Public Use
  Company Number: AUR-APL-2011-01090

PATIENT
  Age: 89 Year
  Sex: Female

DRUGS (16)
  1. LACTULOSE [Concomitant]
  2. RISPERIDONE [Suspect]
     Indication: PARKINSON'S DISEASE
     Dosage: ORAL
     Route: 048
  3. DIGOXIN [Concomitant]
  4. ROPINIROLE [Suspect]
     Indication: PARKINSON'S DISEASE
     Dosage: 3MG, DIALY, ORAL
     Route: 048
  5. CARBIMAZOLE [Concomitant]
  6. AMOXICILLIN [Concomitant]
  7. ASPIRIN [Concomitant]
  8. FORTISIP [Concomitant]
  9. FUROSEMIDE [Concomitant]
  10. ROPINIROLE [Suspect]
     Indication: PARKINSON'S DISEASE
     Dosage: 6 MG, DAILY, ORAL
     Route: 048
  11. FERROUS SULFATE TAB [Concomitant]
  12. CARBIDOPA [Concomitant]
  13. BISOPROLOL FUMARATE [Concomitant]
  14. SINEMET [Concomitant]
  15. SPARTEINE SULPHATE [Concomitant]
  16. LEVODOPA [Concomitant]

REACTIONS (2)
  - WRONG DRUG ADMINISTERED [None]
  - OFF LABEL USE [None]
